FAERS Safety Report 8550338-1 (Version None)
Quarter: 2012Q3

REPORT INFORMATION
  Report Type: 
  Country: None (occurrence: None)
  Receive Date: 20120718
  Receipt Date: 20120703
  Transmission Date: 20120928
  Serious: Yes (Hospitalization, Other)
  Sender: FDA-Public Use
  Company Number: CIP11001750

PATIENT
  Age: 55 Year
  Sex: Male
  Weight: 86.6 kg

DRUGS (36)
  1. NULYTELY (MACROGOL, POTASSIUM CHLORIDE, SODIUM BICARBONATE) [Concomitant]
  2. MAGNESIUM (MAGNESIUM) [Concomitant]
  3. ASCORBIC ACID [Concomitant]
  4. GLYCOLAX (MACROGOL) [Concomitant]
  5. MULTIVITAMIN/ (ASCORBIC ACID, CALCIUM PANTOTHENATE, ERGOCALCIFEROL, NI [Concomitant]
  6. COLACE (DOCUSATE SODIUM) [Concomitant]
  7. FIBERCON (POLYCARBOPHIL CALCIUM) [Concomitant]
  8. ALENDRONATE SODIUM [Concomitant]
  9. OXAZEPAM [Concomitant]
  10. DITROPAN XL [Concomitant]
  11. BACLOFEN [Concomitant]
  12. NITRO-BID [Concomitant]
  13. LIDOCAINE [Concomitant]
  14. VITAMIN D [Concomitant]
  15. DIAZEPAM [Concomitant]
  16. SULFAMETHOXAZOLE AND TRIMETHOPRIM [Concomitant]
  17. ELECTROLYTE SOLUTIONS [Concomitant]
  18. METOCLOPRAMIDE [Concomitant]
  19. CIPROFLOXACIN HCL [Concomitant]
  20. MUSE [Concomitant]
  21. LEVAQUIN [Concomitant]
  22. LORAZEPAM [Concomitant]
  23. CALCIUM CARBONATE [Concomitant]
  24. IBUPROFEN [Concomitant]
  25. OXYBUTYNIN [Concomitant]
  26. DANTROLENE SODIUM [Concomitant]
  27. HYOSCYAMINE (HYOSCYAMINE) [Concomitant]
  28. FERROUS SULFATE TAB [Concomitant]
  29. KETOPROFEN [Concomitant]
  30. NITROFURANTOIN [Concomitant]
  31. PREVACID [Concomitant]
  32. ACTONEL [Suspect]
     Indication: OSTEOPOROSIS
     Dosage: 35 MG ONCE WEEKLY, ORAL
     Route: 048
     Dates: start: 20030930, end: 20090201
  33. RANITIDINE HYDROCHLORIDE [Concomitant]
  34. PROTONIX [Concomitant]
  35. OMEPRAZOLE [Concomitant]
  36. MIRALAX [Concomitant]

REACTIONS (11)
  - COMMINUTED FRACTURE [None]
  - MUSCLE ATROPHY [None]
  - PATHOLOGICAL FRACTURE [None]
  - OSTEOPENIA [None]
  - TIBIA FRACTURE [None]
  - FRACTURE DELAYED UNION [None]
  - FRACTURE DISPLACEMENT [None]
  - FIBULA FRACTURE [None]
  - JOINT SWELLING [None]
  - FEMUR FRACTURE [None]
  - FALL [None]
